FAERS Safety Report 25284983 (Version 4)
Quarter: 2025Q2

REPORT INFORMATION
  Report Type: Report from Study
  Country: GR (occurrence: GR)
  Receive Date: 20250508
  Receipt Date: 20250617
  Transmission Date: 20250716
  Serious: Yes (Death, Hospitalization, Other)
  Sender: ABBVIE
  Company Number: GR-ABBVIE-6266791

PATIENT
  Age: 89 Year
  Sex: Male

DRUGS (2)
  1. CARBIDOPA\LEVODOPA [Suspect]
     Active Substance: CARBIDOPA\LEVODOPA
     Indication: Parkinson^s disease
     Route: 050
  2. CARBIDOPA\LEVODOPA [Suspect]
     Active Substance: CARBIDOPA\LEVODOPA
     Route: 050
     Dates: end: 20220223

REACTIONS (8)
  - Cardio-respiratory arrest [Fatal]
  - General physical health deterioration [Not Recovered/Not Resolved]
  - Renal disorder [Not Recovered/Not Resolved]
  - Lethargy [Unknown]
  - Cholecystectomy [Recovered/Resolved]
  - Cholangitis infective [Not Recovered/Not Resolved]
  - Movement disorder [Not Recovered/Not Resolved]
  - Acute kidney injury [Not Recovered/Not Resolved]

NARRATIVE: CASE EVENT DATE: 20250401
